FAERS Safety Report 10228930 (Version 2)
Quarter: 2014Q2

REPORT INFORMATION
  Report Type: Spontaneous
  Country: US (occurrence: US)
  Receive Date: 20140610
  Receipt Date: 20140627
  Transmission Date: 20141212
  Serious: Yes (Other)
  Sender: FDA-Public Use
  Company Number: US-GLAXOSMITHKLINE-A1075680A

PATIENT
  Sex: Female

DRUGS (3)
  1. ADVAIR [Suspect]
     Indication: CHRONIC OBSTRUCTIVE PULMONARY DISEASE
     Dosage: 1PUFF TWICE PER DAY
     Route: 055
  2. MULTIVITAMIN [Concomitant]
  3. DEXILANT [Concomitant]

REACTIONS (9)
  - Cholecystectomy [Recovering/Resolving]
  - Gallbladder disorder [Recovering/Resolving]
  - Abdominal distension [Recovering/Resolving]
  - Diarrhoea [Recovering/Resolving]
  - Oligomenorrhoea [Recovering/Resolving]
  - Metrorrhagia [Recovering/Resolving]
  - Abdominal pain [Unknown]
  - Vaginal cyst [Unknown]
  - Menstruation irregular [Not Recovered/Not Resolved]
